FAERS Safety Report 21584913 (Version 2)
Quarter: 2022Q4

REPORT INFORMATION
  Report Type: Spontaneous
  Country: US (occurrence: None)
  Receive Date: 20221111
  Receipt Date: 20221226
  Transmission Date: 20230113
  Serious: No
  Sender: FDA-Public Use
  Company Number: 2022A348499

PATIENT
  Sex: Female
  Weight: 79.4 kg

DRUGS (3)
  1. BUDESONIDE\FORMOTEROL\GLYCOPYRRONIUM [Suspect]
     Active Substance: BUDESONIDE\FORMOTEROL\GLYCOPYRRONIUM
     Indication: Pulmonary sarcoidosis
     Dosage: TWO PUFFS TWO TIEMS A DAY
     Route: 055
     Dates: start: 202204
  2. SYMBICORT [Suspect]
     Active Substance: BUDESONIDE\FORMOTEROL FUMARATE DIHYDRATE
     Indication: Asthma
     Dosage: 160/4.5UG; 2 PUFFS TWO TIMES A DAY
     Route: 055
  3. SYMBICORT [Suspect]
     Active Substance: BUDESONIDE\FORMOTEROL FUMARATE DIHYDRATE
     Indication: Pulmonary sarcoidosis
     Dosage: 160/4.5UG; 2 PUFFS TWO TIMES A DAY
     Route: 055

REACTIONS (8)
  - Cough [Unknown]
  - Illness [Unknown]
  - Sarcoidosis [Unknown]
  - Product use issue [Unknown]
  - Product use issue [Unknown]
  - Device malfunction [Unknown]
  - Drug ineffective [Unknown]
  - Intentional product misuse [Unknown]
